FAERS Safety Report 5910650-9 (Version None)
Quarter: 2008Q4

REPORT INFORMATION
  Report Type: 
  Country: None (occurrence: None)
  Receive Date: 20081007
  Receipt Date: 20081001
  Transmission Date: 20090506
  Serious: Yes (Death, Life-Threatening, Hospitalization, Disabling, Other)
  Sender: FDA-Public Use
  Company Number: AU-ASTRAZENECA-2008AP07166

PATIENT
  Age: 23352 Day
  Sex: Female
  Weight: 130 kg

DRUGS (19)
  1. NOLVADEX [Suspect]
     Indication: BREAST CANCER
     Route: 048
     Dates: start: 19981208, end: 20020403
  2. FRUSEMIDE [Concomitant]
     Indication: OEDEMA
     Route: 048
     Dates: end: 20071206
  3. FRUSEMIDE [Concomitant]
     Indication: HYPERTENSION
     Route: 048
     Dates: end: 20071206
  4. DIAFORMIN [Concomitant]
     Indication: DIABETES MELLITUS
     Route: 048
     Dates: end: 20071206
  5. DIMREL [Concomitant]
     Indication: DIABETES MELLITUS
     Route: 048
     Dates: end: 20071206
  6. LIPITOR [Concomitant]
     Indication: HYPERCHOLESTEROLAEMIA
     Route: 048
     Dates: end: 20071206
  7. ACCUPRIL [Concomitant]
     Indication: HYPERTENSION
     Route: 048
     Dates: end: 20071206
  8. FOSAMAX [Concomitant]
     Indication: OSTEOPOROSIS
     Route: 048
     Dates: end: 20071206
  9. ASPIRIN [Concomitant]
     Indication: ANTICOAGULANT THERAPY
     Route: 048
     Dates: end: 20071124
  10. ASPIRIN [Concomitant]
     Indication: THROMBOSIS PROPHYLAXIS
     Route: 048
     Dates: end: 20071124
  11. GLUCOSAMINE [Concomitant]
     Indication: ANALGESIC INTERVENTION SUPPORTIVE THERAPY
     Route: 048
     Dates: end: 20071206
  12. SYMBICORT [Concomitant]
     Route: 055
     Dates: end: 20071206
  13. INSULIN [Concomitant]
     Indication: DIABETES MELLITUS
     Route: 058
     Dates: end: 20071206
  14. CLOPIDOGREL [Concomitant]
     Indication: ANTICOAGULANT THERAPY
     Dates: start: 20070927, end: 20071104
  15. CLOPIDOGREL [Concomitant]
     Dates: start: 20070927, end: 20071104
  16. CLEXANE [Concomitant]
     Indication: ANTICOAGULANT THERAPY
     Route: 058
     Dates: start: 20071130, end: 20071207
  17. CLEXANE [Concomitant]
     Indication: COAGULATION TIME SHORTENED
     Route: 058
     Dates: start: 20071130, end: 20071207
  18. ATENOLOL [Concomitant]
     Indication: HYPERTENSION
     Route: 048
     Dates: start: 20070927, end: 20071206
  19. MAGMIN [Concomitant]
     Indication: MINERAL SUPPLEMENTATION
     Route: 048
     Dates: start: 20070927, end: 20071206

REACTIONS (3)
  - ACUTE MYOCARDIAL INFARCTION [None]
  - CARDIAC ARREST [None]
  - MYOCARDIAL ISCHAEMIA [None]
